FAERS Safety Report 15633328 (Version 1)
Quarter: 2018Q4

REPORT INFORMATION
  Report Type: Spontaneous
  Country: FR (occurrence: FR)
  Receive Date: 20181119
  Receipt Date: 20181119
  Transmission Date: 20190205
  Serious: Yes (Other)
  Sender: FDA-Public Use
  Company Number: FR-TEVA-2018-FR-975728

PATIENT
  Age: 54 Year
  Sex: Female

DRUGS (6)
  1. SKENAN [Concomitant]
     Active Substance: MORPHINE SULFATE
     Route: 048
  2. DOLIPRANE [Concomitant]
     Active Substance: ACETAMINOPHEN
     Route: 065
  3. ABSTRAL [Concomitant]
     Active Substance: FENTANYL CITRATE
     Route: 065
  4. INSULINE [Concomitant]
     Active Substance: INSULIN NOS
     Route: 065
  5. FLAGYL [Concomitant]
     Active Substance: METRONIDAZOLE\METRONIDAZOLE HYDROCHLORIDE
     Route: 065
  6. CISPLATINE [Suspect]
     Active Substance: CISPLATIN
     Indication: CHEMOTHERAPY
     Route: 042
     Dates: start: 20180913, end: 20180913

REACTIONS (4)
  - Angioedema [Recovered/Resolved]
  - Respiratory distress [Recovered/Resolved]
  - Malaise [Recovered/Resolved]
  - Visual impairment [Recovered/Resolved]

NARRATIVE: CASE EVENT DATE: 20180913
